FAERS Safety Report 11037837 (Version 1)
Quarter: 2015Q2

REPORT INFORMATION
  Report Type: Spontaneous
  Country: US (occurrence: None)
  Receive Date: 20150415
  Receipt Date: 20150415
  Transmission Date: 20150821
  Serious: Yes (Hospitalization)
  Sender: FDA-Public Use
  Company Number: None

PATIENT
  Age: 16 Year
  Sex: Female
  Weight: 65.2 kg

DRUGS (3)
  1. DAUNORUBICIN [Suspect]
     Active Substance: DAUNORUBICIN
     Dates: end: 20150302
  2. CYTARABINE. [Suspect]
     Active Substance: CYTARABINE
     Dates: end: 20150307
  3. ETOPOSIDE (VP-16) [Suspect]
     Active Substance: ETOPOSIDE
     Dates: end: 20150302

REACTIONS (10)
  - Pain in extremity [None]
  - Acute myeloid leukaemia [None]
  - Urine output decreased [None]
  - Dyspnoea [None]
  - Thrombocytopenia [None]
  - Pulmonary oedema [None]
  - Oedema peripheral [None]
  - Anaemia [None]
  - Blood creatinine increased [None]
  - Petechiae [None]

NARRATIVE: CASE EVENT DATE: 20150308
